FAERS Safety Report 17905788 (Version 2)
Quarter: 2020Q2

REPORT INFORMATION
  Report Type: Report from Study
  Country: None (occurrence: US)
  Receive Date: 20200617
  Receipt Date: 20200622
  Transmission Date: 20200714
  Serious: Yes (Hospitalization, Other)
  Sender: FDA-Public Use
  Company Number: US-INSMED, INC.-US-INS-20-00843

PATIENT
  Age: 68 Year
  Sex: Female

DRUGS (3)
  1. LAMIRA NEBULIZER SYSTEM [Suspect]
     Active Substance: DEVICE
  2. ARIKAYCE [Suspect]
     Active Substance: AMIKACIN
     Indication: BRONCHIECTASIS
  3. ARIKAYCE [Suspect]
     Active Substance: AMIKACIN
     Indication: SARCOIDOSIS
     Route: 055
     Dates: start: 2020, end: 2020

REACTIONS (9)
  - Dyspnoea [Unknown]
  - Hospitalisation [Unknown]
  - Asthenia [Unknown]
  - Off label use [Unknown]
  - Insomnia [Unknown]
  - Therapy interrupted [Unknown]
  - Feeling abnormal [Unknown]
  - Fatigue [Unknown]
  - Cardiac disorder [Unknown]

NARRATIVE: CASE EVENT DATE: 202005
